FAERS Safety Report 13158779 (Version 1)
Quarter: 2017Q1

REPORT INFORMATION
  Report Type: Spontaneous
  Country: US (occurrence: US)
  Receive Date: 20170127
  Receipt Date: 20170127
  Transmission Date: 20170428
  Serious: Yes (Other)
  Sender: FDA-Public Use
  Company Number: US-PFIZER INC-2017036568

PATIENT
  Age: 48 Year
  Sex: Male
  Weight: 90.72 kg

DRUGS (6)
  1. LIPITOR [Concomitant]
     Active Substance: ATORVASTATIN CALCIUM
     Indication: BLOOD CHOLESTEROL ABNORMAL
     Dosage: 40 MG, 1X/DAY
  2. LYRICA [Suspect]
     Active Substance: PREGABALIN
     Indication: DIABETIC NEUROPATHY
     Dosage: 1 DF, (ONE CAPSULE EVERY 12 HOURS)
  3. BELATACEPT [Concomitant]
     Active Substance: BELATACEPT
     Indication: TRANSPLANT REJECTION
     Dosage: IV ONCE EVERY 28 DAYS
     Route: 042
  4. FORMIC ACID [Concomitant]
     Active Substance: FORMIC ACID
     Indication: KIDNEY TRANSPLANT REJECTION
     Dosage: 360 MG, 2X/DAY
  5. AMLODIPINE [Concomitant]
     Active Substance: AMLODIPINE BESYLATE
     Indication: HYPERTENSION
     Dosage: 2.5 MG, 3X/DAY
  6. LYRICA [Suspect]
     Active Substance: PREGABALIN
     Indication: NEURALGIA
     Dosage: 1 DF, (ONE CAPSULE EVERY 8 HOURS)
     Dates: start: 201701

REACTIONS (3)
  - Renal disorder [Unknown]
  - Drug dose omission [Unknown]
  - Drug effect incomplete [Unknown]

NARRATIVE: CASE EVENT DATE: 201612
